FAERS Safety Report 4333929-3 (Version None)
Quarter: 2004Q2

REPORT INFORMATION
  Report Type: 
  Country: None (occurrence: None)
  Receive Date: 20040402
  Receipt Date: 20040330
  Transmission Date: 20050107
  Serious: Yes (Hospitalization)
  Sender: FDA-Public Use
  Company Number: 400425310

PATIENT
  Age: 25 Year
  Sex: Male

DRUGS (1)
  1. AK-FLUOR [Suspect]
     Indication: DIAGNOSTIC PROCEDURE
     Dosage: 5ML, INTRAVENOUS
     Route: 042

REACTIONS (6)
  - CONTRAST MEDIA REACTION [None]
  - DRUG HYPERSENSITIVITY [None]
  - HYPERHIDROSIS [None]
  - NAUSEA [None]
  - PALPITATIONS [None]
  - VOMITING [None]
